FAERS Safety Report 10393101 (Version 1)
Quarter: 2014Q3

REPORT INFORMATION
  Report Type: Spontaneous
  Country: FR (occurrence: None)
  Receive Date: 20140815
  Receipt Date: 20140815
  Transmission Date: 20150326
  Serious: Yes (Death)
  Sender: FDA-Public Use
  Company Number: NSR_01600_2014

PATIENT
  Age: 72 Year
  Sex: Male

DRUGS (1)
  1. HYDROXYZINE (HYDROXYZINE) [Suspect]
     Active Substance: HYDROXYZINE HYDROCHLORIDE
     Indication: PRODUCT USED FOR UNKNOWN INDICATION
     Dosage: DF

REACTIONS (4)
  - Electrocardiogram QT prolonged [None]
  - Hepatorenal syndrome [None]
  - Overdose [None]
  - Sepsis [None]
